FAERS Safety Report 10470377 (Version 1)
Quarter: 2014Q3

REPORT INFORMATION
  Report Type: Spontaneous
  Country: US (occurrence: US)
  Receive Date: 20140923
  Receipt Date: 20140923
  Transmission Date: 20150326
  Serious: Yes (Hospitalization)
  Sender: FDA-Public Use
  Company Number: US-BIOMARINAP-US-2014-104153

PATIENT
  Age: 26 Year
  Sex: Female

DRUGS (1)
  1. ALDURAZYME [Suspect]
     Active Substance: LARONIDASE
     Indication: MUCOPOLYSACCHARIDOSIS I
     Dosage: 40 MG, QW
     Route: 042
     Dates: start: 20130828

REACTIONS (2)
  - Staphylococcal infection [Unknown]
  - Spinal decompression [Unknown]

NARRATIVE: CASE EVENT DATE: 20140723
